FAERS Safety Report 10595882 (Version 2)
Quarter: 2014Q4

REPORT INFORMATION
  Report Type: Spontaneous
  Country: US (occurrence: US)
  Receive Date: 20141120
  Receipt Date: 20141120
  Transmission Date: 20150529
  Serious: No
  Sender: FDA-Public Use
  Company Number: US-HORIZON-PRE-0105-2014

PATIENT
  Age: 61 Year
  Sex: Male

DRUGS (10)
  1. MELOXICAM. [Concomitant]
     Active Substance: MELOXICAM
  2. FOLIC ACID. [Concomitant]
     Active Substance: FOLIC ACID
  3. RAYOS [Suspect]
     Active Substance: PREDNISONE
     Indication: RHEUMATOID ARTHRITIS
     Dates: start: 20140402, end: 20140709
  4. ALBUTEROL. [Concomitant]
     Active Substance: ALBUTEROL
  5. TRAMADOL [Concomitant]
     Active Substance: TRAMADOL
  6. METHOTREXATE [Concomitant]
     Active Substance: METHOTREXATE
  7. PROVENTIL [Concomitant]
     Active Substance: ALBUTEROL
  8. PLAQUENIL [Concomitant]
     Active Substance: HYDROXYCHLOROQUINE SULFATE
  9. ASPIRIN 81 MG [Concomitant]
     Active Substance: ASPIRIN
  10. MULTIVITAMIN [Concomitant]
     Active Substance: VITAMINS

REACTIONS (3)
  - Feeling abnormal [Recovered/Resolved]
  - Feeling jittery [Recovered/Resolved]
  - Tremor [Recovered/Resolved]
